FAERS Safety Report 25151792 (Version 1)
Quarter: 2025Q2

REPORT INFORMATION
  Report Type: Spontaneous
  Country: CZ (occurrence: CZ)
  Receive Date: 20250402
  Receipt Date: 20250402
  Transmission Date: 20250716
  Serious: Yes (Other)
  Sender: MYLAN
  Company Number: CZ-ROCHE-10000235795

PATIENT
  Age: 60 Year
  Sex: Male

DRUGS (9)
  1. DOXORUBICIN [Suspect]
     Active Substance: DOXORUBICIN
     Indication: Follicular lymphoma
  2. RITUXIMAB [Suspect]
     Active Substance: RITUXIMAB
     Indication: Follicular lymphoma
     Dates: start: 201404, end: 201603
  3. OBINUTUZUMAB [Suspect]
     Active Substance: OBINUTUZUMAB
     Indication: Follicular lymphoma
     Dates: start: 201810, end: 201904
  4. VINCRISTINE [Suspect]
     Active Substance: VINCRISTINE
     Indication: Follicular lymphoma
  5. CYCLOPHOSPHAMIDE [Suspect]
     Active Substance: CYCLOPHOSPHAMIDE
     Indication: Follicular lymphoma
  6. PREDNISONE [Suspect]
     Active Substance: PREDNISONE
     Indication: Follicular lymphoma
  7. ZANUBRUTINIB [Suspect]
     Active Substance: ZANUBRUTINIB
     Indication: Follicular lymphoma
     Dates: start: 201810, end: 201904
  8. IDELALISIB [Suspect]
     Active Substance: IDELALISIB
     Indication: Follicular lymphoma
     Dates: start: 201404, end: 201603
  9. BENDAMUSTINE [Suspect]
     Active Substance: BENDAMUSTINE
     Indication: Follicular lymphoma
     Dates: start: 201404, end: 201603

REACTIONS (1)
  - Disease progression [Unknown]
